FAERS Safety Report 17167999 (Version 1)
Quarter: 2019Q4

REPORT INFORMATION
  Report Type: Spontaneous
  Country: US (occurrence: US)
  Receive Date: 20191218
  Receipt Date: 20191218
  Transmission Date: 20200122
  Serious: Yes (Hospitalization)
  Sender: FDA-Public Use
  Company Number: US-TEVA-2019-US-1154291

PATIENT
  Sex: Male

DRUGS (1)
  1. AJOVY [Suspect]
     Active Substance: FREMANEZUMAB-VFRM
     Indication: MIGRAINE
     Dates: start: 20190606

REACTIONS (6)
  - Constipation [Unknown]
  - Nausea [Unknown]
  - Weight increased [Unknown]
  - Anxiety [Unknown]
  - Dyspnoea [Unknown]
  - Dizziness [Unknown]
